FAERS Safety Report 17642009 (Version 1)
Quarter: 2020Q2

REPORT INFORMATION
  Report Type: Spontaneous
  Country: GB (occurrence: GB)
  Receive Date: 20200408
  Receipt Date: 20200408
  Transmission Date: 20200713
  Serious: Yes (Other)
  Sender: FDA-Public Use
  Company Number: GB-GLAXOSMITHKLINE-GB2020060365

PATIENT
  Age: 46 Year
  Sex: Female
  Weight: 63.5 kg

DRUGS (1)
  1. FLUTICASONE. [Suspect]
     Active Substance: FLUTICASONE
     Indication: SINUSITIS
     Dosage: SPRAYS
     Route: 045
     Dates: start: 20200302, end: 20200316

REACTIONS (12)
  - Dizziness [Unknown]
  - Pharyngeal swelling [Unknown]
  - Palpitations [Not Recovered/Not Resolved]
  - Anxiety [Unknown]
  - Swollen tongue [Unknown]
  - Diplopia [Unknown]
  - Asthenia [Unknown]
  - Nausea [Unknown]
  - Tongue erythema [Unknown]
  - Pharyngeal erythema [Unknown]
  - Headache [Unknown]
  - Heart rate increased [Not Recovered/Not Resolved]

NARRATIVE: CASE EVENT DATE: 20200307
